FAERS Safety Report 23643856 (Version 3)
Quarter: 2024Q2

REPORT INFORMATION
  Report Type: Spontaneous
  Country: US (occurrence: US)
  Receive Date: 20240318
  Receipt Date: 20240618
  Transmission Date: 20240716
  Serious: Yes (Hospitalization)
  Sender: FDA-Public Use
  Company Number: US-Calliditas-2024CAL00400

PATIENT
  Age: 54 Year
  Sex: Female

DRUGS (2)
  1. TARPEYO [Suspect]
     Active Substance: BUDESONIDE
     Indication: IgA nephropathy
     Dosage: 16 MG (4 MG CAPSULES) ONCE DAILY
     Route: 048
     Dates: start: 20240221
  2. CLONIDINE [Concomitant]
     Active Substance: CLONIDINE

REACTIONS (6)
  - Hypertension [Not Recovered/Not Resolved]
  - Hyponatraemia [Unknown]
  - Hypokalaemia [Unknown]
  - Cushingoid [Unknown]
  - Peripheral swelling [Unknown]
  - Increased tendency to bruise [Unknown]

NARRATIVE: CASE EVENT DATE: 20240201
